FAERS Safety Report 7042160-2 (Version None)
Quarter: 2010Q4

REPORT INFORMATION
  Report Type: 
  Country: None (occurrence: None)
  Receive Date: 20101013
  Receipt Date: 20091203
  Transmission Date: 20110411
  Serious: No
  Sender: FDA-Public Use
  Company Number: US-ASTRAZENECA-2009SE30172

PATIENT
  Age: 61 Year
  Sex: Male
  Weight: 93 kg

DRUGS (6)
  1. SYMBICORT [Suspect]
     Indication: ASTHMA
     Dosage: 160/4.5 UG BID
     Route: 055
     Dates: start: 20091001, end: 20091123
  2. ASTHMAQUART [Concomitant]
  3. ALBUTEROL [Concomitant]
  4. EXFORGE [Concomitant]
     Indication: HYPERTENSION
  5. LAXIX [Concomitant]
  6. MILK THISTLE [Concomitant]

REACTIONS (1)
  - CHEST PAIN [None]
